FAERS Safety Report 24682213 (Version 4)
Quarter: 2025Q1

REPORT INFORMATION
  Report Type: Spontaneous
  Country: US (occurrence: US)
  Receive Date: 20241130
  Receipt Date: 20250303
  Transmission Date: 20250409
  Serious: Yes (Other)
  Sender: GILEAD
  Company Number: US-GILEAD-2024-0695433

PATIENT
  Age: 27 Year
  Sex: Male

DRUGS (2)
  1. ATRIPLA [Suspect]
     Active Substance: EFAVIRENZ\EMTRICITABINE\TENOFOVIR DISOPROXIL FUMARATE
     Indication: HIV infection
     Route: 048
     Dates: start: 20100101, end: 20101101
  2. ATRIPLA [Suspect]
     Active Substance: EFAVIRENZ\EMTRICITABINE\TENOFOVIR DISOPROXIL FUMARATE
     Route: 048
     Dates: start: 20100201, end: 20110427

REACTIONS (4)
  - Chronic kidney disease [Recovered/Resolved]
  - Renal failure [Unknown]
  - End stage renal disease [Recovered/Resolved]
  - Chronic kidney disease-mineral and bone disorder [Recovered/Resolved]

NARRATIVE: CASE EVENT DATE: 20130301
